FAERS Safety Report 23235268 (Version 1)
Quarter: 2023Q4

REPORT INFORMATION
  Report Type: Spontaneous
  Country: US (occurrence: None)
  Receive Date: 20231127
  Receipt Date: 20231127
  Transmission Date: 20240110
  Serious: Yes (unspecified)
  Sender: FDA-Public Use
  Company Number: None

PATIENT
  Age: 61 Year
  Sex: Female
  Weight: 121.05 kg

DRUGS (2)
  1. RITUXAN [Suspect]
     Active Substance: RITUXIMAB
     Indication: Rheumatoid arthritis
     Route: 041
     Dates: start: 20231127, end: 20231127
  2. RITUXAN [Concomitant]
     Active Substance: RITUXIMAB
     Dates: start: 20231127, end: 20231127

REACTIONS (1)
  - Throat irritation [None]

NARRATIVE: CASE EVENT DATE: 20231127
